FAERS Safety Report 18374502 (Version 1)
Quarter: 2020Q4

REPORT INFORMATION
  Report Type: Spontaneous
  Country: US (occurrence: US)
  Receive Date: 20201012
  Receipt Date: 20201012
  Transmission Date: 20210114
  Serious: Yes (Hospitalization, Other)
  Sender: FDA-Public Use
  Company Number: US-UPSHER-SMITH LABORATORIES, LLC-2020USL00549

PATIENT
  Age: 13 Month
  Sex: Male

DRUGS (2)
  1. VIGABATRIN. [Suspect]
     Active Substance: VIGABATRIN
     Indication: INFANTILE SPASMS
     Dosage: 150 MG/KG, 1X/DAY
     Route: 065
  2. ADRENOCORTICOTROPIC HORMONE [Suspect]
     Active Substance: CORTICOTROPIN
     Indication: INFANTILE SPASMS
     Dosage: 55 U, 1X/DAY
     Route: 065

REACTIONS (5)
  - Drug interaction [Recovered/Resolved]
  - Dyskinesia [Recovered/Resolved]
  - Toxicity to various agents [Recovered/Resolved]
  - Brain scan abnormal [Recovered/Resolved]
  - Retinal pigmentation [Unknown]
